FAERS Safety Report 10210598 (Version 1)
Quarter: 2014Q2

REPORT INFORMATION
  Report Type: Spontaneous
  Country: US (occurrence: None)
  Receive Date: 20140528
  Receipt Date: 20140528
  Transmission Date: 20141212
  Serious: Yes (Other)
  Sender: FDA-Public Use
  Company Number: AUR-APL-2014-05789

PATIENT
  Age: 54 Year
  Sex: Female
  Weight: 127.01 kg

DRUGS (6)
  1. ALENDRONIC ACID (ALENDRONIC ACID) [Suspect]
     Indication: ARTHRITIS
     Route: 048
     Dates: start: 20140505
  2. CHLORDIAZEPOXIDE CLIDINIUM (CHLORDIAZEPOXIDE W/ CLIDINIUM) [Concomitant]
  3. LOSARTAN (LOSARTAN) [Concomitant]
  4. IBUPROFEN (IBUPROFEN) [Concomitant]
  5. VITAMIN D (ERGOCALCIFEROL) [Concomitant]
  6. B-COMPLEX (B-KOMPLEX) [Concomitant]

REACTIONS (5)
  - Feeling hot [None]
  - Nausea [None]
  - Chest pain [None]
  - Presyncope [None]
  - Self-medication [None]
